FAERS Safety Report 19751498 (Version 1)
Quarter: 2021Q3

REPORT INFORMATION
  Report Type: Spontaneous
  Country: US (occurrence: US)
  Receive Date: 20210827
  Receipt Date: 20210827
  Transmission Date: 20211014
  Serious: No
  Sender: FDA-Public Use
  Company Number: US-MAYNE PHARMA-2020MYN000609

PATIENT

DRUGS (3)
  1. CARBIDOPA LEVODOPA [Suspect]
     Active Substance: CARBIDOPA\LEVODOPA
     Indication: PARKINSONISM
     Dosage: UNK
     Dates: start: 20201201
  2. CARBIDOPA/LEVODOPA [Suspect]
     Active Substance: CARBIDOPA\LEVODOPA
     Indication: PARKINSONISM
     Dosage: 25/100 MG, 3X PER DAY, YELLOW DOME SHAPED PILL WITH ^R539^ IMPRINT; TID
     Route: 048
  3. TRIHEXYPHENIDYL [Concomitant]
     Active Substance: TRIHEXYPHENIDYL
     Indication: TREMOR
     Dosage: 2 MG, TID
     Route: 048

REACTIONS (4)
  - Muscle spasms [Not Recovered/Not Resolved]
  - Drug ineffective [Not Recovered/Not Resolved]
  - Dizziness [Not Recovered/Not Resolved]
  - Dyskinesia [Unknown]
